FAERS Safety Report 6123869-1 (Version None)
Quarter: 2009Q1

REPORT INFORMATION
  Report Type: 
  Country: None (occurrence: None)
  Receive Date: 20090319
  Receipt Date: 20090316
  Transmission Date: 20090719
  Serious: Yes (Other)
  Sender: FDA-Public Use
  Company Number: US-BRISTOL-MYERS SQUIBB COMPANY-14532469

PATIENT
  Age: 47 Year
  Sex: Male
  Weight: 61 kg

DRUGS (9)
  1. REYATAZ [Suspect]
     Indication: HIV INFECTION
     Route: 048
     Dates: start: 20090128, end: 20090128
  2. NPLATE [Suspect]
     Indication: IDIOPATHIC THROMBOCYTOPENIC PURPURA
     Dosage: INIT DOSE:1MCG/KG INCR TO 120MCG-CYC2,186-CYC3,242-CYC4,308-CYC5. 28JAN09-INCR TO 366MCG.
     Dates: start: 20081222
  3. EPZICOM [Suspect]
     Dates: start: 20090128, end: 20090128
  4. METHADONE HCL [Concomitant]
     Route: 048
  5. RANITIDINE HCL [Concomitant]
     Route: 048
  6. ALPRAZOLAM [Concomitant]
  7. ORCIPRENALINE SULPHATE [Concomitant]
     Route: 055
  8. ESTAZOLAM [Concomitant]
  9. TEMAZEPAM [Concomitant]

REACTIONS (1)
  - THROMBOCYTOPENIA [None]
